FAERS Safety Report 5120916-0 (Version None)
Quarter: 2006Q4

REPORT INFORMATION
  Report Type: 
  Country: None (occurrence: None)
  Receive Date: 20061003
  Receipt Date: 20061003
  Transmission Date: 20070319
  Serious: Yes (Disabling)
  Sender: FDA-Public Use
  Company Number: None

PATIENT
  Age: 50 Year
  Sex: Male
  Weight: 88 kg

DRUGS (2)
  1. VALGANCICLOVIR HCL [Suspect]
     Indication: HIV INFECTION
     Dosage: 900 MG BID PO
     Route: 048
     Dates: start: 20060907, end: 20060911
  2. VALGANCICLOVIR HCL [Suspect]
     Indication: INFECTION
     Dosage: 900 MG BID PO
     Route: 048
     Dates: start: 20060907, end: 20060911

REACTIONS (4)
  - HAEMATOCRIT DECREASED [None]
  - HAEMOGLOBIN DECREASED [None]
  - PLATELET COUNT DECREASED [None]
  - WHITE BLOOD CELL COUNT DECREASED [None]
